FAERS Safety Report 23335687 (Version 2)
Quarter: 2024Q1

REPORT INFORMATION
  Report Type: Spontaneous
  Country: JP (occurrence: JP)
  Receive Date: 20231225
  Receipt Date: 20240301
  Transmission Date: 20240409
  Serious: Yes (Hospitalization, Other)
  Sender: FDA-Public Use
  Company Number: JP-002147023-NVSJ2023JP018028

PATIENT
  Age: 35 Year
  Sex: Female

DRUGS (1)
  1. LETROZOLE [Suspect]
     Active Substance: LETROZOLE
     Indication: Ovulation induction
     Dosage: UNK
     Route: 065

REACTIONS (4)
  - Premature labour [Unknown]
  - Premature delivery [Unknown]
  - Twin pregnancy [Unknown]
  - Maternal exposure before pregnancy [Unknown]
